FAERS Safety Report 7291111-4 (Version None)
Quarter: 2011Q1

REPORT INFORMATION
  Report Type: 
  Country: None (occurrence: None)
  Receive Date: 20110202
  Receipt Date: 20110124
  Transmission Date: 20110831
  Serious: Yes (Hospitalization)
  Sender: FDA-Public Use
  Company Number: 2011SP003711

PATIENT
  Sex: Female

DRUGS (3)
  1. TRAZODONE [Concomitant]
  2. SAPHRIS [Suspect]
     Indication: BIPOLAR DISORDER
     Dosage: 5 MG;BID
     Dates: end: 20110101
  3. KLONOPIN [Concomitant]

REACTIONS (2)
  - RESPIRATORY DISTRESS [None]
  - BRADYCARDIA [None]
